FAERS Safety Report 23263085 (Version 11)
Quarter: 2024Q4

REPORT INFORMATION
  Report Type: Spontaneous
  Country: US (occurrence: US)
  Receive Date: 20231205
  Receipt Date: 20241014
  Transmission Date: 20250114
  Serious: No
  Sender: BIOGEN
  Company Number: US-BIOGEN-2023BI01238527

PATIENT
  Age: 30 Year
  Sex: Female

DRUGS (1)
  1. TYSABRI [Suspect]
     Active Substance: NATALIZUMAB
     Indication: Multiple sclerosis
     Dosage: START DATE ALSO REPORTED AS 02-JAN-2020
     Route: 050
     Dates: start: 20160119

REACTIONS (7)
  - Nasopharyngitis [Not Recovered/Not Resolved]
  - Infection [Unknown]
  - Endometriosis [Unknown]
  - Illness [Unknown]
  - Hepatic enzyme increased [Unknown]
  - Urinary tract infection [Unknown]
  - Pyrexia [Unknown]

NARRATIVE: CASE EVENT DATE: 20231109
